FAERS Safety Report 9132693 (Version 1)
Quarter: 2013Q1

REPORT INFORMATION
  Report Type: Spontaneous
  Country: US (occurrence: US)
  Receive Date: 20130301
  Receipt Date: 20130301
  Transmission Date: 20140127
  Serious: No
  Sender: FDA-Public Use
  Company Number: US-PFIZER INC-2013042673

PATIENT
  Age: 71 Year
  Sex: Female

DRUGS (1)
  1. ELLENCE [Suspect]
     Indication: NEOPLASM MALIGNANT
     Dosage: 50 MG, WEEKLY
     Route: 042

REACTIONS (2)
  - Disease progression [Unknown]
  - Neoplasm malignant [Unknown]
